FAERS Safety Report 5788977-3 (Version None)
Quarter: 2008Q2

REPORT INFORMATION
  Report Type: 
  Country: None (occurrence: None)
  Receive Date: 20080625
  Receipt Date: 20080625
  Transmission Date: 20081010
  Serious: Yes (Life-Threatening, Hospitalization)
  Sender: FDA-Public Use
  Company Number: None

PATIENT
  Age: 73 Year
  Sex: Female

DRUGS (4)
  1. TYGACIL [Suspect]
     Indication: GASTROINTESTINAL INFECTION
     Dosage: INTRAVENOUS;;0;0
     Route: 042
     Dates: start: 20080401, end: 20080424
  2. LEVOFLOXACIN [Concomitant]
  3. MEROPENEM [Concomitant]
  4. CLINDAMYCIN [Concomitant]

REACTIONS (4)
  - ABSCESS [None]
  - LEUKOCYTOSIS [None]
  - PANCREATITIS [None]
  - TACHYCARDIA [None]
